FAERS Safety Report 4608491-8 (Version None)
Quarter: 2005Q1

REPORT INFORMATION
  Report Type: 
  Country: None (occurrence: None)
  Receive Date: 20050315
  Receipt Date: 20050307
  Transmission Date: 20050727
  Serious: Yes (Other)
  Sender: FDA-Public Use
  Company Number: GB-GLAXOSMITHKLINE-B0374116A

PATIENT
  Age: 24 Year
  Sex: Female

DRUGS (2)
  1. ZYBAN [Suspect]
     Indication: SMOKING CESSATION THERAPY
     Route: 048
     Dates: start: 20050201
  2. LOESTRIN 1.5/30 [Suspect]
     Indication: ORAL CONTRACEPTION
     Dosage: 20MCG PER DAY
     Route: 048
     Dates: start: 20040701

REACTIONS (1)
  - METRORRHAGIA [None]
